FAERS Safety Report 9819890 (Version 2)
Quarter: 2014Q2

REPORT INFORMATION
  Report Type: Spontaneous
  Country: US (occurrence: None)
  Receive Date: 20131224
  Receipt Date: 20140428
  Transmission Date: 20141212
  Serious: No
  Sender: FDA-Public Use
  Company Number: PHEH2013US024546

PATIENT
  Sex: 0

DRUGS (2)
  1. GILENYA [Suspect]
     Indication: MULTIPLE SCLEROSIS
     Dates: start: 20130624, end: 20131119
  2. AMIPYRA (FAMPRIDINE) [Concomitant]

REACTIONS (5)
  - Lymphadenopathy [None]
  - Multiple sclerosis relapse [None]
  - Drug ineffective [None]
  - Asthenia [None]
  - Gait disturbance [None]
